FAERS Safety Report 6258307-1 (Version None)
Quarter: 2009Q3

REPORT INFORMATION
  Report Type: 
  Country: None (occurrence: None)
  Receive Date: 20090702
  Receipt Date: 20090702
  Transmission Date: 20100115
  Serious: Yes (Other)
  Sender: FDA-Public Use
  Company Number: None

PATIENT

DRUGS (1)
  1. TYLENOL (CAPLET) [Suspect]
     Indication: HEADACHE
     Dosage: AS PRESCRIBED

REACTIONS (4)
  - DRUG HYPERSENSITIVITY [None]
  - FEAR [None]
  - HEPATIC PAIN [None]
  - PRODUCT QUALITY ISSUE [None]
